FAERS Safety Report 7742633-0 (Version None)
Quarter: 2011Q3

REPORT INFORMATION
  Report Type: 
  Country: None (occurrence: None)
  Receive Date: 20110830
  Receipt Date: 20110817
  Transmission Date: 20111222
  Serious: Yes (Hospitalization, Disabling, Other)
  Sender: FDA-Public Use
  Company Number: 2010SP054733

PATIENT
  Age: 29 Year
  Sex: Female
  Weight: 89.8122 kg

DRUGS (2)
  1. MULTI-VITAMINS [Concomitant]
  2. NUVARING [Suspect]
     Indication: CONTRACEPTION
     Dosage: QM;VAG
     Route: 067
     Dates: start: 20080701, end: 20081028

REACTIONS (23)
  - FALL [None]
  - TRICHOMONIASIS [None]
  - BALANCE DISORDER [None]
  - CERVICITIS [None]
  - PERICARDIAL EFFUSION [None]
  - STRESS [None]
  - DEEP VEIN THROMBOSIS [None]
  - ANXIETY [None]
  - THROMBOSIS [None]
  - FLUSHING [None]
  - HORDEOLUM [None]
  - HYPERCOAGULATION [None]
  - ABSCESS DRAINAGE [None]
  - ARTHROPOD BITE [None]
  - NEPHROLITHIASIS [None]
  - FACE INJURY [None]
  - VAGINAL ABSCESS [None]
  - PANIC ATTACK [None]
  - VULVOVAGINAL MYCOTIC INFECTION [None]
  - PULMONARY EMBOLISM [None]
  - DIZZINESS [None]
  - DEPRESSION [None]
  - TACHYCARDIA [None]
